FAERS Safety Report 6738884-4 (Version None)
Quarter: 2010Q2

REPORT INFORMATION
  Report Type: 
  Country: None (occurrence: None)
  Receive Date: 20100521
  Receipt Date: 20100505
  Transmission Date: 20101027
  Serious: Yes (Other)
  Sender: FDA-Public Use
  Company Number: FKO201000181

PATIENT
  Age: 8 Year
  Sex: Male

DRUGS (5)
  1. CYTARABINE (MANUFACTURER UNKNOWN) (CYTARABINE) [Suspect]
     Indication: ACUTE MYELOID LEUKAEMIA
  2. ETOPOSIDE [Suspect]
     Indication: ACUTE MYELOID LEUKAEMIA
  3. EMPIRICAL ANTIBIOTICS (ANTIBIOTICS) [Concomitant]
  4. METRONIDAZOLE [Concomitant]
  5. AMPHOTERICIN B [Concomitant]

REACTIONS (2)
  - FEBRILE NEUTROPENIA [None]
  - FUSARIUM INFECTION [None]
